FAERS Safety Report 8122471 (Version 3)
Quarter: 2014Q3

REPORT INFORMATION
  Report Type: Report from Study
  Country: NL (occurrence: NL)
  Receive Date: 20110906
  Receipt Date: 20140905
  Transmission Date: 20150326
  Serious: Yes (Death)
  Sender: FDA-Public Use
  Company Number: PHHO2011NL14811

PATIENT

DRUGS (2)
  1. ACENOCOUMAROL [Suspect]
     Active Substance: ACENOCOUMAROL
     Indication: AORTIC VALVE REPLACEMENT
     Dosage: 3 TO 4 MG, DAILY
     Route: 048
  2. ACZ885 [Suspect]
     Active Substance: CANAKINUMAB
     Indication: SCHNITZLER^S SYNDROME
     Dosage: UNK
     Route: 058
     Dates: start: 20110221, end: 20110708

REACTIONS (4)
  - Cardiac output decreased [Fatal]
  - Hypovolaemia [Fatal]
  - Road traffic accident [Fatal]
  - Retroperitoneal haemorrhage [Fatal]

NARRATIVE: CASE EVENT DATE: 20110825
